FAERS Safety Report 6288704-X (Version None)
Quarter: 2009Q3

REPORT INFORMATION
  Report Type: 
  Country: None (occurrence: None)
  Receive Date: 20090729
  Receipt Date: 20090716
  Transmission Date: 20100115
  Serious: Yes (Other)
  Sender: FDA-Public Use
  Company Number: US-ROCHE-621710

PATIENT
  Sex: Male
  Weight: 74.8 kg

DRUGS (1)
  1. ACCUTANE [Suspect]
     Route: 065
     Dates: start: 19970319, end: 19970801

REACTIONS (9)
  - COLITIS ULCERATIVE [None]
  - DRY SKIN [None]
  - EMOTIONAL DISTRESS [None]
  - EPISTAXIS [None]
  - INFLAMMATORY BOWEL DISEASE [None]
  - INJURY [None]
  - INTESTINAL HAEMORRHAGE [None]
  - INTESTINAL OBSTRUCTION [None]
  - LIP DRY [None]
